FAERS Safety Report 24919607 (Version 1)
Quarter: 2025Q1

REPORT INFORMATION
  Report Type: Report from Study
  Country: IT (occurrence: IT)
  Receive Date: 20250204
  Receipt Date: 20250204
  Transmission Date: 20250409
  Serious: No
  Sender: EXELIXIS
  Company Number: None

PATIENT
  Age: 56 Year
  Sex: Male

DRUGS (1)
  1. CABOMETYX [Suspect]
     Active Substance: CABOZANTINIB S-MALATE
     Indication: Hepatocellular carcinoma
     Dates: start: 20230320, end: 20230329

REACTIONS (9)
  - Confusional state [Recovering/Resolving]
  - Hypothyroidism [Recovered/Resolved]
  - Decreased appetite [Recovered/Resolved]
  - Hypophosphataemia [Recovered/Resolved]
  - Weight decreased [Recovered/Resolved]
  - Hyperbilirubinaemia [Recovered/Resolved]
  - Diarrhoea [Recovered/Resolved]
  - Asthenia [Recovering/Resolving]
  - Proteinuria [Recovered/Resolved]

NARRATIVE: CASE EVENT DATE: 20230320
